FAERS Safety Report 10340787 (Version 1)
Quarter: 2014Q3

REPORT INFORMATION
  Report Type: Spontaneous
  Country: JP (occurrence: None)
  Receive Date: 20140722
  Receipt Date: 20140722
  Transmission Date: 20150326
  Serious: Yes (Other)
  Sender: FDA-Public Use
  Company Number: AXC-2014-000452

PATIENT
  Age: 61 Year
  Sex: Male

DRUGS (2)
  1. URSODEOXYCHOLIC ACID [Suspect]
     Active Substance: URSODIOL
     Indication: BILIARY CIRRHOSIS PRIMARY
     Route: 048
  2. BEZAFIBRATE (BEZAFIBRATE) [Concomitant]

REACTIONS (2)
  - Drug effect incomplete [None]
  - Cholangitis sclerosing [None]
